FAERS Safety Report 8281011-5 (Version None)
Quarter: 2012Q2

REPORT INFORMATION
  Report Type: 
  Country: None (occurrence: None)
  Receive Date: 20120412
  Receipt Date: 20120404
  Transmission Date: 20120825
  Serious: Yes (Hospitalization)
  Sender: FDA-Public Use
  Company Number: US-ABBOTT-12P-163-0922168-00

PATIENT
  Sex: Male
  Weight: 95.794 kg

DRUGS (2)
  1. HUMIRA [Suspect]
     Indication: PSORIASIS
     Route: 058
     Dates: start: 20070530
  2. HUMIRA [Suspect]
     Route: 058

REACTIONS (1)
  - GASTRIC BANDING [None]
